FAERS Safety Report 12653195 (Version 1)
Quarter: 2016Q3

REPORT INFORMATION
  Report Type: Spontaneous
  Country: US (occurrence: US)
  Receive Date: 20160815
  Receipt Date: 20160815
  Transmission Date: 20161109
  Serious: Yes (Hospitalization)
  Sender: FDA-Public Use
  Company Number: US-BAYER-2016-156895

PATIENT
  Sex: Female
  Weight: 46.71 kg

DRUGS (2)
  1. BAYER LOW DOSE [Suspect]
     Active Substance: ASPIRIN
     Indication: CEREBROVASCULAR ACCIDENT PROPHYLAXIS
     Dosage: 1 DF, QD
     Route: 048
     Dates: start: 2004
  2. PEROXIDE [Concomitant]
     Active Substance: HYDROGEN PEROXIDE
     Dosage: UNK

REACTIONS (4)
  - Off label use [Unknown]
  - Product use issue [Unknown]
  - Dyspepsia [Recovered/Resolved]
  - Device ineffective [Unknown]

NARRATIVE: CASE EVENT DATE: 2004
